FAERS Safety Report 19221655 (Version 1)
Quarter: 2021Q2

REPORT INFORMATION
  Report Type: Spontaneous
  Country: US (occurrence: US)
  Receive Date: 20210506
  Receipt Date: 20210506
  Transmission Date: 20210717
  Serious: No
  Sender: FDA-Public Use
  Company Number: US-AMGEN-USASP2021067811

PATIENT

DRUGS (9)
  1. OTEZLA [Suspect]
     Active Substance: APREMILAST
     Indication: COVID-19
     Dosage: 30 MILLIGRAM, QD
     Route: 048
  2. OTEZLA [Suspect]
     Active Substance: APREMILAST
     Indication: HYPERSOMNIA
  3. HYDROXY [Concomitant]
  4. OTEZLA [Suspect]
     Active Substance: APREMILAST
     Indication: PSORIASIS
     Dosage: 30 MILLIGRAM, BID
     Route: 048
     Dates: start: 20200527
  5. OTEZLA [Suspect]
     Active Substance: APREMILAST
     Indication: GASTROOESOPHAGEAL REFLUX DISEASE
  6. OTEZLA [Suspect]
     Active Substance: APREMILAST
     Indication: OFF LABEL USE
  7. CLARITIN [Concomitant]
     Active Substance: LORATADINE
     Dosage: UNK
  8. OTEZLA [Suspect]
     Active Substance: APREMILAST
     Indication: ESSENTIAL HYPERTENSION
  9. OTEZLA [Suspect]
     Active Substance: APREMILAST
     Indication: SLEEP APNOEA SYNDROME

REACTIONS (1)
  - Intentional product misuse [Unknown]
